FAERS Safety Report 12721640 (Version 1)
Quarter: 2016Q3

REPORT INFORMATION
  Report Type: Spontaneous
  Country: JP (occurrence: JP)
  Receive Date: 20160907
  Receipt Date: 20160907
  Transmission Date: 20161109
  Serious: Yes (Death, Hospitalization)
  Sender: FDA-Public Use
  Company Number: JP-TEVA-688879ISR

PATIENT
  Age: 64 Year
  Sex: Female
  Weight: 39 kg

DRUGS (5)
  1. LENDORMIN D [Concomitant]
     Active Substance: BROTIZOLAM
     Dosage: .25 MILLIGRAM DAILY;
     Route: 048
  2. E-FEN BUCCAL [Suspect]
     Active Substance: FENTANYL CITRATE
     Indication: BREAKTHROUGH PAIN
     Dosage: DAILY DOSE: 200 MCG- 300 MCG
     Route: 002
     Dates: start: 20141023, end: 20141024
  3. PICOSULFATE NA [Concomitant]
     Indication: INTESTINAL OBSTRUCTION
     Dosage: 10 GTT DAILY;
     Route: 048
  4. ZYPREXA [Concomitant]
     Active Substance: OLANZAPINE
     Indication: INSOMNIA
     Dosage: 5 MILLIGRAM DAILY;
     Route: 048
  5. DUROTEP [Concomitant]
     Active Substance: FENTANYL
     Indication: CANCER PAIN
     Dosage: 6.3 MILLIGRAM DAILY;
     Route: 062
     Dates: start: 20141020

REACTIONS (4)
  - Constipation [Not Recovered/Not Resolved]
  - Ovarian cancer [Fatal]
  - Vomiting [Not Recovered/Not Resolved]
  - Nausea [Not Recovered/Not Resolved]

NARRATIVE: CASE EVENT DATE: 2014
